FAERS Safety Report 6938686-X (Version None)
Quarter: 2010Q3

REPORT INFORMATION
  Report Type: 
  Country: None (occurrence: None)
  Receive Date: 20100824
  Receipt Date: 20100810
  Transmission Date: 20110219
  Serious: Yes (Other)
  Sender: FDA-Public Use
  Company Number: PHHY2010US52905

PATIENT
  Sex: Female

DRUGS (1)
  1. FEMARA [Suspect]
     Indication: BREAST CANCER
     Dosage: 2.5 MG/ DAILY
     Route: 048
     Dates: start: 20100727

REACTIONS (4)
  - CHOLECYSTECTOMY [None]
  - HERNIA REPAIR [None]
  - NAUSEA [None]
  - VOMITING [None]
